FAERS Safety Report 6233310-6 (Version None)
Quarter: 2009Q2

REPORT INFORMATION
  Report Type: 
  Country: None (occurrence: None)
  Receive Date: 20090615
  Receipt Date: 20090615
  Transmission Date: 20091009
  Serious: Yes (Hospitalization)
  Sender: FDA-Public Use
  Company Number: None

PATIENT
  Sex: Male
  Weight: 83 kg

DRUGS (5)
  1. CYCLOPHOSPHAMIDE [Suspect]
     Dosage: 1380 MG
  2. DOXIL [Suspect]
     Dosage: 76 MG
  3. PREDNISONE TAB [Suspect]
     Dosage: 500 MG
  4. RITUXIMAB (MOAB C2B8 ANTI CD20, CHIMERIC) [Suspect]
     Dosage: 690 MG
  5. VINCRISTINE SULFATE [Suspect]
     Dosage: 2 MG

REACTIONS (7)
  - ABNORMAL LOSS OF WEIGHT [None]
  - ANOREXIA [None]
  - FATIGUE [None]
  - HYPOPHAGIA [None]
  - POSTOPERATIVE ADHESION [None]
  - SCAR [None]
  - SMALL INTESTINAL OBSTRUCTION [None]
